FAERS Safety Report 18470354 (Version 3)
Quarter: 2021Q1

REPORT INFORMATION
  Report Type: Spontaneous
  Country: US (occurrence: US)
  Receive Date: 20201106
  Receipt Date: 20210318
  Transmission Date: 20210419
  Serious: Yes (Hospitalization, Other)
  Sender: FDA-Public Use
  Company Number: US-PFIZER INC-2020424361

PATIENT
  Age: 73 Year
  Sex: Female

DRUGS (15)
  1. TUKYSA [Suspect]
     Active Substance: TUCATINIB
     Dosage: 250 MG
  2. TUKYSA [Suspect]
     Active Substance: TUCATINIB
     Dosage: UNK
  3. HERCEPTIN [Suspect]
     Active Substance: TRASTUZUMAB
     Dosage: UNK
  4. ZOFRAN [Suspect]
     Active Substance: ONDANSETRON HYDROCHLORIDE
     Dosage: UNK
     Route: 042
  5. TUKYSA [Suspect]
     Active Substance: TUCATINIB
     Dosage: UNK
  6. TRASTUZUMAB. [Suspect]
     Active Substance: TRASTUZUMAB
     Dosage: UNK
  7. XELODA [Suspect]
     Active Substance: CAPECITABINE
     Dosage: UNK
  8. CAPECITABINE. [Suspect]
     Active Substance: CAPECITABINE
     Dosage: 1150 MG
  9. TUKYSA [Suspect]
     Active Substance: TUCATINIB
     Dosage: 250 MG
  10. DOXYCYCLINE HYCLATE. [Suspect]
     Active Substance: DOXYCYCLINE HYCLATE
     Dosage: UNK
  11. ATIVAN [Suspect]
     Active Substance: LORAZEPAM
     Dosage: UNK
  12. TUKYSA [Suspect]
     Active Substance: TUCATINIB
     Indication: BREAST CANCER FEMALE
     Dosage: 300 MG, 2X/DAY
     Dates: start: 201607
  13. DILAUDID [Suspect]
     Active Substance: HYDROMORPHONE HYDROCHLORIDE
     Dosage: UNK
  14. COMPAZINE [Suspect]
     Active Substance: PROCHLORPERAZINE MALEATE
     Dosage: UNK
  15. PHENERGAN [Suspect]
     Active Substance: PROMETHAZINE HYDROCHLORIDE
     Dosage: UNK

REACTIONS (17)
  - Nausea [Unknown]
  - Dizziness [Unknown]
  - Skin reaction [Recovering/Resolving]
  - Blister [Unknown]
  - Disorientation [Unknown]
  - Vomiting [Unknown]
  - Retching [Unknown]
  - Diarrhoea [Unknown]
  - Localised infection [Unknown]
  - Haemorrhage [Unknown]
  - Balance disorder [Unknown]
  - Palmar-plantar erythrodysaesthesia syndrome [Unknown]
  - Headache [Unknown]
  - Skin exfoliation [Unknown]
  - Blood pressure fluctuation [Unknown]
  - Skin discolouration [Unknown]
  - Gait disturbance [Unknown]

NARRATIVE: CASE EVENT DATE: 202010
